FAERS Safety Report 10120801 (Version 2)
Quarter: 2014Q2

REPORT INFORMATION
  Report Type: Spontaneous
  Country: PT (occurrence: FR)
  Receive Date: 20140425
  Receipt Date: 20140425
  Transmission Date: 20141212
  Serious: Yes (Other)
  Sender: FDA-Public Use
  Company Number: 2013SP003109

PATIENT
  Age: 86 Year
  Sex: Male
  Weight: 158 kg

DRUGS (7)
  1. ZEBINIX (ESLICARBAZEPINE ACETATE) [Suspect]
     Indication: TEMPORAL LOBE EPILEPSY
     Route: 048
     Dates: start: 20131002, end: 20131014
  2. KEPPRA [Concomitant]
     Indication: PRODUCT USED FOR UNKNOWN INDICATION
  3. TRANXENE [Concomitant]
     Indication: ANXIETY
  4. ALPRESS LP [Concomitant]
     Indication: HYPERTENSION
  5. KARDEGIC [Concomitant]
     Indication: PLATELET AGGREGATION INHIBITION
  6. SIFROL [Concomitant]
     Indication: RESTLESS LEGS SYNDROME
  7. DOLIPRANE [Concomitant]
     Indication: PAIN

REACTIONS (4)
  - Erythema [Recovered/Resolved]
  - Pruritus [Recovered/Resolved]
  - Rash scarlatiniform [Recovered/Resolved]
  - Urticaria [Recovered/Resolved]
